FAERS Safety Report 11493850 (Version 1)
Quarter: 2015Q3

REPORT INFORMATION
  Report Type: Spontaneous
  Country: US (occurrence: US)
  Receive Date: 20150911
  Receipt Date: 20150911
  Transmission Date: 20151125
  Serious: No
  Sender: FDA-Public Use
  Company Number: US-ROCHE-1031449

PATIENT
  Sex: Male

DRUGS (5)
  1. COPEGUS [Suspect]
     Active Substance: RIBAVIRIN
     Route: 065
  2. ANTICOAGULANT [Concomitant]
     Active Substance: UNSPECIFIED INGREDIENT
  3. COPEGUS [Suspect]
     Active Substance: RIBAVIRIN
     Indication: HEPATITIS C
     Route: 048
     Dates: start: 20111109
  4. MORPHINE [Concomitant]
     Active Substance: MORPHINE
  5. PEGASYS [Suspect]
     Active Substance: PEGINTERFERON ALFA-2A
     Indication: HEPATITIS C
     Route: 058
     Dates: start: 20111109

REACTIONS (5)
  - Back pain [Unknown]
  - Decreased appetite [Unknown]
  - Depression [Unknown]
  - Anaemia [Unknown]
  - Pain in extremity [Unknown]
